FAERS Safety Report 10210465 (Version 1)
Quarter: 2014Q2

REPORT INFORMATION
  Report Type: Report from Study
  Country: TN (occurrence: TN)
  Receive Date: 20140602
  Receipt Date: 20140602
  Transmission Date: 20141212
  Serious: Yes (Death)
  Sender: FDA-Public Use
  Company Number: TN-SA-2014SA068999

PATIENT
  Age: 82 Year
  Sex: Female

DRUGS (4)
  1. CLOPIDOGREL BISULFATE [Suspect]
     Indication: ANGINA UNSTABLE
     Dosage: DOSE: 75 UNITS NOT SPECIFIED
     Route: 048
     Dates: start: 20140106, end: 20140201
  2. ASPEGIC [Concomitant]
     Route: 048
  3. LASILIX [Concomitant]
     Route: 048
  4. TAGAMET [Concomitant]
     Route: 048

REACTIONS (2)
  - Ischaemic stroke [Fatal]
  - Hemiplegia [Fatal]
